FAERS Safety Report 16521127 (Version 2)
Quarter: 2019Q3

REPORT INFORMATION
  Report Type: Report from Study
  Country: US (occurrence: US)
  Receive Date: 20190702
  Receipt Date: 20190712
  Transmission Date: 20191004
  Serious: Yes (Hospitalization)
  Sender: FDA-Public Use
  Company Number: US-EISAI MEDICAL RESEARCH-EC-2019-058374

PATIENT
  Age: 62 Year
  Sex: Male
  Weight: 70.3 kg

DRUGS (2)
  1. LENVATINIB [Suspect]
     Active Substance: LENVATINIB
     Indication: HUERTHLE CELL CARCINOMA
     Route: 048
     Dates: start: 20190327, end: 20190621
  2. PEMBROLIZUMAB. [Suspect]
     Active Substance: PEMBROLIZUMAB
     Indication: HUERTHLE CELL CARCINOMA
     Route: 041
     Dates: start: 20190327, end: 20190508

REACTIONS (4)
  - Skin infection [Recovered/Resolved]
  - Sepsis [Recovered/Resolved]
  - Urinary tract infection [Recovered/Resolved]
  - Arthralgia [Unknown]

NARRATIVE: CASE EVENT DATE: 20190624
